FAERS Safety Report 25351828 (Version 1)
Quarter: 2025Q2

REPORT INFORMATION
  Report Type: Spontaneous
  Country: LB (occurrence: LB)
  Receive Date: 20250523
  Receipt Date: 20250523
  Transmission Date: 20250717
  Serious: Yes (Hospitalization)
  Sender: ENDO
  Company Number: LB-ENDO USA, INC.-2025-001246

PATIENT
  Age: 62 Year
  Sex: Male

DRUGS (2)
  1. BACLOFEN [Suspect]
     Active Substance: BACLOFEN
     Indication: Gastrooesophageal reflux disease
     Dosage: 10 MILLIGRAM, TID
     Route: 065
  2. UNSPECIFIED INGREDIENT [Concomitant]
     Active Substance: UNSPECIFIED INGREDIENT
     Indication: Gastrooesophageal reflux disease
     Route: 065

REACTIONS (3)
  - Pancreatitis acute [Recovered/Resolved]
  - Toxicity to various agents [Recovered/Resolved]
  - Off label use [Recovered/Resolved]
